FAERS Safety Report 18659846 (Version 2)
Quarter: 2020Q4

REPORT INFORMATION
  Report Type: Spontaneous
  Country: US (occurrence: US)
  Receive Date: 20201224
  Receipt Date: 20201230
  Transmission Date: 20210114
  Serious: No
  Sender: FDA-Public Use
  Company Number: US-TEVA-2020-US-1861708

PATIENT
  Sex: Female

DRUGS (2)
  1. PERMETHRIN ACTAVIS [Suspect]
     Active Substance: PERMETHRIN
     Route: 061
     Dates: start: 2020
  2. PERMETHRIN ACTAVIS [Suspect]
     Active Substance: PERMETHRIN
     Indication: ACARODERMATITIS
     Route: 061
     Dates: start: 2019

REACTIONS (3)
  - Skin lesion [Unknown]
  - Therapeutic product effect variable [Unknown]
  - Expired product administered [Unknown]

NARRATIVE: CASE EVENT DATE: 2020
